FAERS Safety Report 4948331-0 (Version None)
Quarter: 2006Q1

REPORT INFORMATION
  Report Type: 
  Country: None (occurrence: None)
  Receive Date: 20060127
  Receipt Date: 20050214
  Transmission Date: 20060701
  Serious: Yes (Hospitalization)
  Sender: FDA-Public Use
  Company Number: 05-02-0228

PATIENT
  Age: 62 Year
  Sex: Female

DRUGS (2)
  1. CLOZAPINE [Suspect]
     Indication: SCHIZOPHRENIA
     Dosage: 300MG QD, ORAL
     Route: 048
     Dates: start: 20020101, end: 20050101
  2. LOVENOX [Suspect]
     Indication: DEEP VEIN THROMBOSIS

REACTIONS (1)
  - DEEP VEIN THROMBOSIS [None]
